FAERS Safety Report 24034274 (Version 4)
Quarter: 2024Q4

REPORT INFORMATION
  Report Type: Report from Study
  Country: CA (occurrence: CA)
  Receive Date: 20240701
  Receipt Date: 20241015
  Transmission Date: 20250114
  Serious: Yes (Hospitalization, Other)
  Sender: CSL BEHRING
  Company Number: CA-BEH-2024172784

PATIENT
  Age: 29 Year
  Sex: Female
  Weight: 40.8 kg

DRUGS (23)
  1. HIZENTRA [Suspect]
     Active Substance: HUMAN IMMUNOGLOBULIN G
     Indication: Chronic inflammatory demyelinating polyradiculoneuropathy
     Dosage: 10 G, QW
     Route: 065
     Dates: start: 20240514, end: 20240514
  2. HIZENTRA [Suspect]
     Active Substance: HUMAN IMMUNOGLOBULIN G
     Dosage: 10 G, QW
     Route: 065
     Dates: start: 20240514
  3. FENTANYL [Concomitant]
     Active Substance: FENTANYL
  4. KETOROLAC [Concomitant]
     Active Substance: KETOROLAC TROMETHAMINE
  5. BACLOFEN [Concomitant]
     Active Substance: BACLOFEN
  6. ZOFRAN [Concomitant]
     Active Substance: ONDANSETRON HYDROCHLORIDE
  7. GABAPENTIN [Concomitant]
     Active Substance: GABAPENTIN
  8. PANTOPRAZOLE MAGNESIUM [Concomitant]
     Active Substance: PANTOPRAZOLE MAGNESIUM
  9. LINACLOTIDE [Concomitant]
     Active Substance: LINACLOTIDE
  10. CLONAZEPAM [Concomitant]
     Active Substance: CLONAZEPAM
  11. TRAZODONE [Concomitant]
     Active Substance: TRAZODONE HYDROCHLORIDE
  12. PRAZOSIN [Concomitant]
     Active Substance: PRAZOSIN\PRAZOSIN HYDROCHLORIDE
  13. OXYCODONE [Concomitant]
     Active Substance: OXYCODONE
  14. OXYCODONE [Concomitant]
     Active Substance: OXYCODONE
  15. METHOTREXATE [Concomitant]
     Active Substance: METHOTREXATE
  16. FOLIC ACID [Concomitant]
     Active Substance: FOLIC ACID
  17. VITAMIN D NOS [Concomitant]
     Active Substance: CHOLECALCIFEROL\ERGOCALCIFEROL
  18. KETAMINE [Concomitant]
     Active Substance: KETAMINE
  19. SIMLANDI [Concomitant]
     Active Substance: ADALIMUMAB-RYVK
  20. DULOXETINE [Concomitant]
     Active Substance: DULOXETINE
  21. DIAZEPAM [Concomitant]
     Active Substance: DIAZEPAM
  22. ONDANSETRON [Concomitant]
     Active Substance: ONDANSETRON
  23. HYDROCORTISONE [Concomitant]
     Active Substance: HYDROCORTISONE
     Indication: Rash

REACTIONS (9)
  - Ill-defined disorder [Unknown]
  - Anaphylactic reaction [Unknown]
  - Urticaria [Recovered/Resolved]
  - Infusion site erythema [Unknown]
  - Infusion site pruritus [Unknown]
  - Device use error [Unknown]
  - Tooth infection [Unknown]
  - Urticaria [Unknown]
  - Therapy cessation [Unknown]

NARRATIVE: CASE EVENT DATE: 20240514
